FAERS Safety Report 5040274-X (Version None)
Quarter: 2006Q2

REPORT INFORMATION
  Report Type: 
  Country: None (occurrence: None)
  Receive Date: 20060630
  Receipt Date: 20060620
  Transmission Date: 20061013
  Serious: Yes (Hospitalization)
  Sender: FDA-Public Use
  Company Number: US-JNJFOC-20060504646

PATIENT
  Sex: Female

DRUGS (4)
  1. RISPERDAL [Suspect]
  2. RISPERDAL [Suspect]
     Indication: DRUG USE FOR UNKNOWN INDICATION
  3. VISTARIL [Concomitant]
     Route: 048
  4. WELLBUTRIN XL [Concomitant]
     Route: 048

REACTIONS (2)
  - DRUG EXPOSURE DURING PREGNANCY [None]
  - HOSPITALISATION [None]
